FAERS Safety Report 16070951 (Version 3)
Quarter: 2019Q2

REPORT INFORMATION
  Report Type: Spontaneous
  Country: IT (occurrence: IT)
  Receive Date: 20190314
  Receipt Date: 20190422
  Transmission Date: 20190711
  Serious: Yes (Other)
  Sender: FDA-Public Use
  Company Number: IT-SA-2019SA065418

PATIENT
  Age: 55 Year
  Sex: Male
  Weight: 54 kg

DRUGS (8)
  1. DEXAMETHASONE. [Concomitant]
     Active Substance: DEXAMETHASONE
     Dosage: UNK, UNK
     Route: 065
  2. OXALIPLATIN. [Suspect]
     Active Substance: OXALIPLATIN
     Dosage: 95.6 MG, QCY
     Route: 042
     Dates: start: 20190218, end: 20190218
  3. FLUOROURACIL. [Suspect]
     Active Substance: FLUOROURACIL
     Indication: GASTRIC CANCER
     Dosage: 2.7 G, QCY
     Route: 041
     Dates: start: 20190212, end: 20190212
  4. FLUOROURACIL. [Suspect]
     Active Substance: FLUOROURACIL
     Dosage: 450 G, QCY
     Route: 040
     Dates: start: 20190218, end: 20190218
  5. FLUOROURACIL. [Suspect]
     Active Substance: FLUOROURACIL
     Dosage: 450 MG, QCY
     Route: 040
     Dates: start: 20190212, end: 20190212
  6. FLUOROURACIL. [Suspect]
     Active Substance: FLUOROURACIL
     Dosage: 2.7 G, QCY
     Route: 041
     Dates: start: 20190218, end: 20190218
  7. OXALIPLATIN. [Suspect]
     Active Substance: OXALIPLATIN
     Indication: GASTRIC CANCER
     Dosage: 95.6 MG, QCY
     Route: 042
     Dates: start: 20190212, end: 20190212
  8. RANITIDINE. [Concomitant]
     Active Substance: RANITIDINE
     Dosage: UNK, UNK
     Route: 065

REACTIONS (3)
  - Blood iron decreased [Recovering/Resolving]
  - Iron deficiency anaemia [Unknown]
  - Anaemia [Recovering/Resolving]

NARRATIVE: CASE EVENT DATE: 20190228
